FAERS Safety Report 8238383-7 (Version None)
Quarter: 2012Q1

REPORT INFORMATION
  Report Type: 
  Country: None (occurrence: None)
  Receive Date: 20120327
  Receipt Date: 20120221
  Transmission Date: 20120608
  Serious: Yes (Hospitalization, Other)
  Sender: FDA-Public Use
  Company Number: US-PFIZER INC-2009177986

PATIENT
  Age: 66 Year
  Sex: Male

DRUGS (2)
  1. TEMSIROLIMUS [Suspect]
     Indication: METASTATIC RENAL CELL CARCINOMA
     Dosage: 15 MG, WEEKLY
     Route: 042
     Dates: start: 20070423
  2. SUTENT [Suspect]
     Indication: METASTATIC RENAL CELL CARCINOMA
     Dosage: 25 MG, 1X/DAY
     Route: 048
     Dates: start: 20070423

REACTIONS (3)
  - GOUT [None]
  - CELLULITIS [None]
  - THROMBOCYTOPENIA [None]
